FAERS Safety Report 15904531 (Version 2)
Quarter: 2019Q3

REPORT INFORMATION
  Report Type: Spontaneous
  Country: US (occurrence: US)
  Receive Date: 20190204
  Receipt Date: 20190729
  Transmission Date: 20191004
  Serious: Yes (Hospitalization, Other)
  Sender: FDA-Public Use
  Company Number: US-SUN PHARMACEUTICAL INDUSTRIES LTD-2019R1-197765

PATIENT
  Age: 22 Year
  Sex: Female

DRUGS (3)
  1. NIACIN. [Suspect]
     Active Substance: NIACIN
     Indication: PRODUCT USED FOR UNKNOWN INDICATION
     Dosage: UNK
     Route: 065
  2. INSULIN [Suspect]
     Active Substance: INSULIN NOS
     Indication: DIABETES MELLITUS
     Dosage: UNK
     Route: 065
  3. GEMFIBROZIL. [Suspect]
     Active Substance: GEMFIBROZIL
     Indication: HYPERTRIGLYCERIDAEMIA
     Dosage: 600 MILLIGRAM, BID
     Route: 065

REACTIONS (8)
  - Diabetic ketoacidosis [Unknown]
  - Upper respiratory tract infection [Unknown]
  - Premature rupture of membranes [Unknown]
  - Viral infection [Unknown]
  - Foetal death [Unknown]
  - Premature delivery [Unknown]
  - Treatment noncompliance [Unknown]
  - Exposure during pregnancy [Unknown]
